FAERS Safety Report 12309079 (Version 1)
Quarter: 2016Q2

REPORT INFORMATION
  Report Type: Spontaneous
  Country: US (occurrence: None)
  Receive Date: 20160426
  Receipt Date: 20160426
  Transmission Date: 20160815
  Serious: Yes (Death, Hospitalization, Disabling)
  Sender: FDA-Public Use
  Company Number: None

PATIENT
  Age: 32 Year
  Sex: Female
  Weight: 113.4 kg

DRUGS (1)
  1. MISOPROSTOL 100 MCG, 25 50 [Suspect]
     Active Substance: MISOPROSTOL
     Indication: LABOUR INDUCTION
     Route: 067
     Dates: start: 20130902, end: 20130902

REACTIONS (11)
  - Drug monitoring procedure not performed [None]
  - Uterine hyperstimulation [None]
  - Maternal exposure during pregnancy [None]
  - Nervous system disorder [None]
  - Cerebrovascular accident [None]
  - Apgar score low [None]
  - Acidosis [None]
  - Death neonatal [None]
  - Uterine hypertonus [None]
  - Maternal drugs affecting foetus [None]
  - Meconium in amniotic fluid [None]

NARRATIVE: CASE EVENT DATE: 20130903
